FAERS Safety Report 8407639 (Version 2)
Quarter: 2013Q1

REPORT INFORMATION
  Report Type: Spontaneous
  Country: CA (occurrence: CA)
  Receive Date: 20120215
  Receipt Date: 20130328
  Transmission Date: 20140127
  Serious: Yes (Death, Hospitalization, Other)
  Sender: FDA-Public Use
  Company Number: CA-B.I. PHARMACEUTICALS,INC./RIDGEFIELD-2012-CN-00275CN

PATIENT
  Age: 75 Year
  Sex: Female

DRUGS (1)
  1. PRADAX [Suspect]
     Indication: ANTICOAGULANT THERAPY
     Dosage: 150 MG
     Route: 065
     Dates: start: 2010, end: 2010

REACTIONS (2)
  - Cerebrovascular accident [Fatal]
  - Cerebrovascular accident [Unknown]
